FAERS Safety Report 13138302 (Version 1)
Quarter: 2017Q1

REPORT INFORMATION
  Report Type: Spontaneous
  Country: US (occurrence: US)
  Receive Date: 20170123
  Receipt Date: 20170123
  Transmission Date: 20170428
  Serious: No
  Sender: FDA-Public Use
  Company Number: US-UNITED THERAPEUTICS-UNT-2016-010983

PATIENT
  Age: 59 Year
  Sex: Female
  Weight: 101.18 kg

DRUGS (1)
  1. REMODULIN [Suspect]
     Active Substance: TREPROSTINIL
     Indication: PULMONARY HYPERTENSION
     Dosage: CONTINUING
     Route: 041
     Dates: start: 20160629, end: 20160629

REACTIONS (7)
  - Waist circumference increased [Unknown]
  - Nausea [Unknown]
  - Oedema peripheral [Unknown]
  - Hypotension [Unknown]
  - Fatigue [Unknown]
  - Dyspnoea [Unknown]
  - Abdominal pain upper [Unknown]

NARRATIVE: CASE EVENT DATE: 20160629
